FAERS Safety Report 20856709 (Version 5)
Quarter: 2022Q3

REPORT INFORMATION
  Report Type: Spontaneous
  Country: US (occurrence: US)
  Receive Date: 20220520
  Receipt Date: 20220714
  Transmission Date: 20221026
  Serious: Yes (Hospitalization, Other)
  Sender: FDA-Public Use
  Company Number: US-SA-SAC20220513001101

PATIENT
  Age: 76 Year
  Sex: Female

DRUGS (5)
  1. DUPIXENT [Suspect]
     Active Substance: DUPILUMAB
     Indication: Nasal polyps
     Dosage: 300 MG, QOW
     Route: 058
     Dates: start: 202203
  2. LOSARTAN [Concomitant]
     Active Substance: LOSARTAN
  3. QUETIAPINE [Concomitant]
     Active Substance: QUETIAPINE
  4. HYDRALAZINE [Concomitant]
     Active Substance: HYDRALAZINE HYDROCHLORIDE
  5. XANAX [Concomitant]
     Active Substance: ALPRAZOLAM

REACTIONS (12)
  - Blood pressure increased [Unknown]
  - Asthma [Unknown]
  - Cardiac disorder [Unknown]
  - Heart rate decreased [Unknown]
  - Loss of consciousness [Unknown]
  - Headache [Unknown]
  - Sinusitis [Unknown]
  - Blood pressure abnormal [Unknown]
  - Nervousness [Unknown]
  - Oxygen saturation decreased [Unknown]
  - Injection site pain [Unknown]
  - Product use in unapproved indication [Unknown]

NARRATIVE: CASE EVENT DATE: 20220101
